FAERS Safety Report 5496198-7 (Version None)
Quarter: 2007Q4

REPORT INFORMATION
  Report Type: 
  Country: None (occurrence: None)
  Receive Date: 20071025
  Receipt Date: 20071022
  Transmission Date: 20080405
  Serious: Yes (Other)
  Sender: FDA-Public Use
  Company Number: TN-BRISTOL-MYERS SQUIBB COMPANY-13952726

PATIENT
  Age: 41 Year
  Sex: Female

DRUGS (4)
  1. ISONIAZID [Suspect]
     Indication: PULMONARY TUBERCULOSIS
  2. STREPTOMYCIN [Suspect]
     Indication: PULMONARY TUBERCULOSIS
  3. RIFAMPICIN [Suspect]
     Indication: PULMONARY TUBERCULOSIS
  4. PYRAZINAMIDE [Suspect]
     Indication: PULMONARY TUBERCULOSIS

REACTIONS (4)
  - AGGRESSION [None]
  - HALLUCINATION [None]
  - INSOMNIA [None]
  - IRRITABILITY [None]
